FAERS Safety Report 4286654-1 (Version None)
Quarter: 2004Q1

REPORT INFORMATION
  Report Type: 
  Country: None (occurrence: None)
  Receive Date: 20040204
  Receipt Date: 20040127
  Transmission Date: 20041129
  Serious: Yes (Hospitalization)
  Sender: FDA-Public Use
  Company Number: US-JNJFOC-20040105957

PATIENT
  Age: 46 Year
  Sex: Female

DRUGS (5)
  1. TOPAMAX [Suspect]
     Indication: SCHIZOAFFECTIVE DISORDER
     Dosage: 100 MG, 2 IN 1 DAY
     Dates: start: 20030801
  2. SLEEPING PILLS (OTHER HYPNOTICS AND SEDATIVES) [Suspect]
     Indication: DRUG USE FOR UNKNOWN INDICATION
  3. ZOLOFT [Concomitant]
  4. TRAZODONE HCL [Concomitant]
  5. XANAX [Concomitant]

REACTIONS (2)
  - OVERDOSE [None]
  - SUICIDE ATTEMPT [None]
